FAERS Safety Report 10187077 (Version 14)
Quarter: 2014Q4

REPORT INFORMATION
  Report Type: Report from Study
  Country: CA (occurrence: CA)
  Receive Date: 20140522
  Receipt Date: 20141217
  Transmission Date: 20150528
  Serious: Yes (Other)
  Sender: FDA-Public Use
  Company Number: CA-ROCHE-1301050

PATIENT
  Age: 73 Year
  Sex: Male
  Weight: 76 kg

DRUGS (13)
  1. METHOTREXATE [Concomitant]
     Active Substance: METHOTREXATE
  2. DEXILANT [Concomitant]
     Active Substance: DEXLANSOPRAZOLE
  3. SOLU-MEDROL [Concomitant]
     Active Substance: METHYLPREDNISOLONE SODIUM SUCCINATE
     Indication: PREMEDICATION
     Route: 042
     Dates: start: 20131105
  4. PLAQUENIL [Suspect]
     Active Substance: HYDROXYCHLOROQUINE SULFATE
     Indication: PRODUCT USED FOR UNKNOWN INDICATION
     Route: 065
  5. FOLIC ACID. [Concomitant]
     Active Substance: FOLIC ACID
  6. CLOPIDOGREL [Concomitant]
     Active Substance: CLOPIDOGREL BISULFATE
  7. OXYCODONE [Concomitant]
     Active Substance: OXYCODONE
     Dosage: EVERY EVENING
     Route: 065
  8. TYLENOL [Concomitant]
     Active Substance: ACETAMINOPHEN
     Indication: PREMEDICATION
     Route: 048
     Dates: start: 20131105
  9. ATORVASTATIN [Concomitant]
     Active Substance: ATORVASTATIN
  10. ACETAMINOPHEN. [Concomitant]
     Active Substance: ACETAMINOPHEN
     Route: 048
     Dates: start: 20131105
  11. ACEBUTOLOL [Concomitant]
     Active Substance: ACEBUTOLOL
  12. RITUXAN [Suspect]
     Active Substance: RITUXIMAB
     Indication: RHEUMATOID ARTHRITIS
     Dosage: RECENT DOSE ON 19/NOV/2013. DAY 1 DAY 15
     Route: 042
     Dates: start: 20131105
  13. METHYLPREDNISOLONE. [Concomitant]
     Active Substance: METHYLPREDNISOLONE
     Route: 042
     Dates: start: 20131105

REACTIONS (20)
  - Headache [Not Recovered/Not Resolved]
  - Musculoskeletal chest pain [Recovered/Resolved]
  - Infusion related reaction [Recovering/Resolving]
  - Tooth infection [Unknown]
  - Infusion related reaction [Recovered/Resolved]
  - Tooth fracture [Not Recovered/Not Resolved]
  - Fatigue [Unknown]
  - Labyrinthitis [Unknown]
  - Gastritis [Unknown]
  - Vision blurred [Unknown]
  - Fatigue [Not Recovered/Not Resolved]
  - Arthralgia [Not Recovered/Not Resolved]
  - Thermal burn [Not Recovered/Not Resolved]
  - Infection [Recovered/Resolved]
  - Chest pain [Recovered/Resolved]
  - Weight decreased [Unknown]
  - Depression [Unknown]
  - Migraine [Not Recovered/Not Resolved]
  - Rheumatoid arthritis [Recovered/Resolved]
  - Cough [Recovered/Resolved]

NARRATIVE: CASE EVENT DATE: 20131105
